FAERS Safety Report 5077172-1 (Version None)
Quarter: 2006Q3

REPORT INFORMATION
  Report Type: 
  Country: None (occurrence: None)
  Receive Date: 20060810
  Receipt Date: 20051228
  Transmission Date: 20061208
  Serious: No
  Sender: FDA-Public Use
  Company Number: US-GLAXOSMITHKLINE-A0587080A

PATIENT
  Age: 45 Year
  Sex: Male

DRUGS (2)
  1. PAXIL [Suspect]
     Route: 048
  2. OXYCONTIN [Concomitant]

REACTIONS (1)
  - DRUG INEFFECTIVE [None]
